FAERS Safety Report 10283553 (Version 2)
Quarter: 2014Q4

REPORT INFORMATION
  Report Type: Spontaneous
  Country: FR (occurrence: FR)
  Receive Date: 20140708
  Receipt Date: 20141013
  Transmission Date: 20150528
  Serious: Yes (Hospitalization)
  Sender: FDA-Public Use
  Company Number: FR-ROCHE-1430895

PATIENT
  Age: 64 Year
  Sex: Male

DRUGS (19)
  1. CHLORAMINOPHENE [Concomitant]
     Active Substance: CHLORAMBUCIL
     Route: 065
     Dates: start: 2006, end: 2009
  2. STAGID [Concomitant]
     Active Substance: METFORMIN PAMOATE
     Route: 065
     Dates: end: 20140606
  3. ALLOPURINOL. [Concomitant]
     Active Substance: ALLOPURINOL
     Route: 048
     Dates: end: 20140617
  4. BENDAMUSTINE [Concomitant]
     Active Substance: BENDAMUSTINE
     Dosage: CYCLE 2
     Route: 065
     Dates: start: 20130729
  5. DEXAMETHASONE. [Concomitant]
     Active Substance: DEXAMETHASONE
     Route: 065
     Dates: start: 201309, end: 201312
  6. STAGID [Concomitant]
     Active Substance: METFORMIN PAMOATE
     Route: 065
     Dates: start: 20140619
  7. MABTHERA [Suspect]
     Active Substance: RITUXIMAB
     Indication: WALDENSTROM^S MACROGLOBULINAEMIA
     Dosage: 3 COURSES OF RITUXIMAB
     Route: 042
     Dates: start: 2009, end: 201312
  8. BENDAMUSTINE [Concomitant]
     Active Substance: BENDAMUSTINE
     Dosage: CYCLE 1 (FOURTH LINE OF CHEMOTHERAPY 2 TO 3 COURSES)
     Route: 065
     Dates: start: 20130702
  9. BENDAMUSTINE [Concomitant]
     Active Substance: BENDAMUSTINE
     Dosage: CYCLE 3
     Route: 065
  10. KALEORID [Concomitant]
     Active Substance: POTASSIUM CHLORIDE
  11. TADENAN [Concomitant]
     Active Substance: PYGEUM
     Route: 048
     Dates: end: 20140620
  12. CYCLOPHOSPHAMIDE. [Concomitant]
     Active Substance: CYCLOPHOSPHAMIDE
     Route: 065
     Dates: start: 201309, end: 201312
  13. PREDNISONE. [Concomitant]
     Active Substance: PREDNISONE
  14. PENTACARINAT [Concomitant]
     Active Substance: PENTAMIDINE ISETHIONATE
     Dosage: 1 AEROSOL
     Route: 065
     Dates: start: 201308
  15. INSULIN [Concomitant]
     Active Substance: INSULIN NOS
     Route: 065
     Dates: start: 20140606
  16. HYDROXYDAUNORUBICIN [Concomitant]
     Active Substance: DOXORUBICIN
  17. ACUPAN [Concomitant]
     Active Substance: NEFOPAM HYDROCHLORIDE
  18. ONCOVIN [Concomitant]
     Active Substance: VINCRISTINE SULFATE
  19. INEXIUM [Concomitant]
     Active Substance: ESOMEPRAZOLE
     Route: 065
     Dates: start: 201401

REACTIONS (3)
  - Lymphopenia [Recovering/Resolving]
  - Staphylococcal sepsis [Recovering/Resolving]
  - Hypogammaglobulinaemia [Recovering/Resolving]

NARRATIVE: CASE EVENT DATE: 20140603
